FAERS Safety Report 7510426-5 (Version None)
Quarter: 2011Q2

REPORT INFORMATION
  Report Type: 
  Country: None (occurrence: None)
  Receive Date: 20110527
  Receipt Date: 20110520
  Transmission Date: 20111010
  Serious: Yes (Other)
  Sender: FDA-Public Use
  Company Number: US-RB-027819-11

PATIENT
  Age: 52 Year
  Sex: Male

DRUGS (1)
  1. SUBOXONE [Suspect]
     Indication: PRODUCT USED FOR UNKNOWN INDICATION
     Dosage: DOSING INFORMATION UNKNOWN
     Route: 065

REACTIONS (4)
  - SUBSTANCE ABUSE [None]
  - MENTAL DISORDER DUE TO A GENERAL MEDICAL CONDITION [None]
  - NIGHTMARE [None]
  - MASS [None]
